FAERS Safety Report 8434881-1 (Version None)
Quarter: 2012Q2

REPORT INFORMATION
  Report Type: 
  Country: None (occurrence: None)
  Receive Date: 20120611
  Receipt Date: 20120611
  Transmission Date: 20120825
  Serious: Yes (Hospitalization)
  Sender: FDA-Public Use
  Company Number: None

PATIENT
  Sex: Male
  Weight: 10 kg

DRUGS (5)
  1. ETOPOSIDE [Suspect]
     Dosage: 81 MG
  2. METHOTREXATE [Suspect]
     Dosage: 3520 MG
  3. VINCRISTINE SULFATE [Suspect]
     Dosage: .5 MG
  4. LEUCOVORIN CALCIUM [Suspect]
     Dosage: 35.2 MG
  5. CISPLATIN [Suspect]
     Dosage: 38 MG

REACTIONS (2)
  - BLOOD PHOSPHORUS DECREASED [None]
  - BLOOD POTASSIUM DECREASED [None]
